FAERS Safety Report 6941327-9 (Version None)
Quarter: 2010Q3

REPORT INFORMATION
  Report Type: 
  Country: None (occurrence: None)
  Receive Date: 20100825
  Receipt Date: 20100824
  Transmission Date: 20110219
  Serious: Yes (Death, Life-Threatening)
  Sender: FDA-Public Use
  Company Number: FR-CEPHALON-2009010326

PATIENT
  Sex: Female

DRUGS (5)
  1. EFFENTORA [Suspect]
     Indication: CANCER PAIN
     Route: 002
     Dates: start: 20090822, end: 20090908
  2. PROZAC [Concomitant]
  3. ZELITREX [Concomitant]
  4. BACTRIM [Concomitant]
  5. HALDOL [Concomitant]

REACTIONS (1)
  - MULTIPLE MYELOMA [None]
